FAERS Safety Report 11714512 (Version 1)
Quarter: 2015Q4

REPORT INFORMATION
  Report Type: Spontaneous
  Country: BR (occurrence: BR)
  Receive Date: 20151109
  Receipt Date: 20151109
  Transmission Date: 20160304
  Serious: Yes (Other)
  Sender: FDA-Public Use
  Company Number: BR-PFIZER INC-2015375695

PATIENT
  Age: 56 Year
  Sex: Male
  Weight: 77.5 kg

DRUGS (3)
  1. ARADOIS [Concomitant]
     Active Substance: LOSARTAN POTASSIUM
     Indication: BLOOD PRESSURE MEASUREMENT
     Dosage: 1 TABLET OF 50 MG, 2X/DAY (EVERY 12 HOURS)
     Dates: start: 2012
  2. ATENOLOL. [Concomitant]
     Active Substance: ATENOLOL
     Indication: BLOOD PRESSURE MEASUREMENT
     Dosage: 1 TABLET OF AN UNSPECIFIED DOSE, 2X/DAY (EVERY 12 HOURS)
     Dates: start: 2012
  3. NORVASC [Suspect]
     Active Substance: AMLODIPINE BESYLATE
     Indication: BLOOD PRESSURE MEASUREMENT
     Dosage: 10 MG (2 TABLETS OF 5MG), DAILY
     Route: 048
     Dates: start: 201405

REACTIONS (3)
  - Abdominal distension [Unknown]
  - Gastritis [Unknown]
  - Gastric neoplasm [Unknown]

NARRATIVE: CASE EVENT DATE: 201501
